FAERS Safety Report 10956103 (Version 1)
Quarter: 2015Q1

REPORT INFORMATION
  Report Type: Spontaneous
  Country: US (occurrence: None)
  Receive Date: 20150325
  Receipt Date: 20150325
  Transmission Date: 20150721
  Serious: No
  Sender: FDA-Public Use
  Company Number: None

PATIENT
  Age: 57 Year
  Sex: Male

DRUGS (2)
  1. HUMIRA [Suspect]
     Active Substance: ADALIMUMAB
     Indication: PITYRIASIS
     Dosage: 40 MG EVERY 14 DAYS SUBCUTANEOUSLY
     Route: 058
     Dates: start: 20140520
  2. HUMIRA [Suspect]
     Active Substance: ADALIMUMAB
     Indication: RHEUMATOID ARTHRITIS
     Dosage: 40 MG EVERY 14 DAYS SUBCUTANEOUSLY
     Route: 058
     Dates: start: 20140520

REACTIONS (4)
  - Arthralgia [None]
  - Headache [None]
  - Muscle fatigue [None]
  - Tinnitus [None]

NARRATIVE: CASE EVENT DATE: 20150323
